FAERS Safety Report 9592893 (Version 1)
Quarter: 2013Q3

REPORT INFORMATION
  Report Type: Spontaneous
  Country: US (occurrence: None)
  Receive Date: 20130930
  Receipt Date: 20130930
  Transmission Date: 20140515
  Serious: Yes (Other)
  Sender: FDA-Public Use
  Company Number: 1000046020

PATIENT
  Age: 60 Year
  Sex: Female

DRUGS (9)
  1. LINZESS [Suspect]
     Indication: CONSTIPATION
     Dates: start: 20130611
  2. CLONAZEPAM(CLONAZEPAM)(CLONAZEPAM) [Concomitant]
  3. CRESTOR(ROSUVASTATIN CALCIM)(ROSUVASTATIN CALCIUM) [Concomitant]
  4. LYRICA(PREGABALIN)(PREGABALIN) [Concomitant]
  5. VALTREX(VALACICLOVIR HYDROCHLORIDE)(VALACICLOVIR HYDROCHLORIDE) [Concomitant]
  6. NEXIUM(ESOMEPRAZOLE(ESOMEPRAZOLE) [Concomitant]
  7. CYMBALTA(DULOXETINE HYDROCHLORIDE)(DULOXETINE HYDROCHLORIDE) [Concomitant]
  8. AMBIEN (ZOLPIDEM TARTRATE)(ZOLPIDEM TARTRATE) [Concomitant]
  9. ARTHROTEC(DICLOFENAC, MISOPROSTOL)(DICLOFENAC, MISOPROSTOL) [Concomitant]

REACTIONS (2)
  - Diarrhoea [None]
  - Faecal incontinence [None]
